FAERS Safety Report 10440679 (Version 3)
Quarter: 2014Q3

REPORT INFORMATION
  Report Type: Spontaneous
  Country: CA (occurrence: CA)
  Receive Date: 20140909
  Receipt Date: 20140919
  Transmission Date: 20150326
  Serious: Yes (Hospitalization, Other)
  Sender: FDA-Public Use
  Company Number: CA-OTSUKA-US-2014-12166

PATIENT

DRUGS (6)
  1. PANTOLOC                           /01263204/ [Concomitant]
     Active Substance: PANTOPRAZOLE SODIUM
     Indication: PRODUCT USED FOR UNKNOWN INDICATION
     Dosage: 40 DF DOSAGE FORM, QD
     Route: 065
     Dates: start: 20140812
  2. REMERON [Concomitant]
     Active Substance: MIRTAZAPINE
     Indication: PRODUCT USED FOR UNKNOWN INDICATION
     Dosage: 5 MG MILLIGRAM(S), TID
     Route: 065
  3. LOXAPINE [Concomitant]
     Active Substance: LOXAPINE
     Indication: PRODUCT USED FOR UNKNOWN INDICATION
     Dosage: 50 DF DOSAGE FORM, QD
     Route: 065
  4. CLONAZEPAM. [Concomitant]
     Active Substance: CLONAZEPAM
     Indication: PRODUCT USED FOR UNKNOWN INDICATION
     Dosage: 0.5 MG MILLIGRAM(S), UNK
     Route: 048
  5. ABILIFY MAINTENA [Suspect]
     Active Substance: ARIPIPRAZOLE
     Indication: SCHIZOPHRENIA
     Dosage: 400 MG MILLIGRAM(S), SINGLE
     Route: 030
     Dates: start: 20140715
  6. ATIVAN [Concomitant]
     Active Substance: LORAZEPAM
     Indication: PRODUCT USED FOR UNKNOWN INDICATION
     Dosage: UNK, PRN
     Route: 065

REACTIONS (4)
  - Psychiatric decompensation [Unknown]
  - Psychotic disorder [Unknown]
  - Akathisia [Recovering/Resolving]
  - Delusion [Unknown]

NARRATIVE: CASE EVENT DATE: 201408
